FAERS Safety Report 8352612-0 (Version None)
Quarter: 2012Q2

REPORT INFORMATION
  Report Type: 
  Country: None (occurrence: None)
  Receive Date: 20120511
  Receipt Date: 20120427
  Transmission Date: 20120825
  Serious: Yes (Congenital Anomaly, Other)
  Sender: FDA-Public Use
  Company Number: DE-MYLANLABS-2012S1008669

PATIENT
  Age: 0 Year
  Sex: Female
  Weight: 3.57 kg

DRUGS (2)
  1. SERTRALINE HYDROCHLORIDE [Suspect]
     Dosage: 75 [MG/D ]
     Route: 064
     Dates: start: 20091217, end: 20101005
  2. TRIMIPRAMINE MALEATE [Suspect]
     Dosage: 75 [MG/D ]
     Route: 064
     Dates: start: 20091217, end: 20101005

REACTIONS (5)
  - MECONIUM IN AMNIOTIC FLUID [None]
  - MATERNAL EXPOSURE DURING PREGNANCY [None]
  - ATRIAL SEPTAL DEFECT [None]
  - CONGENITAL TRICUSPID VALVE INCOMPETENCE [None]
  - NEONATAL RESPIRATORY DISTRESS SYNDROME [None]
